FAERS Safety Report 8596207-2 (Version None)
Quarter: 2012Q3

REPORT INFORMATION
  Report Type: 
  Country: None (occurrence: None)
  Receive Date: 20120815
  Receipt Date: 20120807
  Transmission Date: 20120928
  Serious: Yes (Hospitalization)
  Sender: FDA-Public Use
  Company Number: DE-GLAXOSMITHKLINE-B0802828C

PATIENT
  Sex: Male
  Weight: 48 kg

DRUGS (2)
  1. GEMZAR [Suspect]
     Indication: SARCOMA
     Dosage: 1200MGM2 CYCLIC
     Route: 042
     Dates: start: 20120411
  2. VOTRIENT [Suspect]
     Indication: SARCOMA
     Dosage: 400MG PER DAY
     Route: 048
     Dates: start: 20120411

REACTIONS (3)
  - GENERAL PHYSICAL HEALTH DETERIORATION [None]
  - FATIGUE [None]
  - MUSCULAR WEAKNESS [None]
